FAERS Safety Report 19481526 (Version 1)
Quarter: 2021Q3

REPORT INFORMATION
  Report Type: Spontaneous
  Country: US (occurrence: US)
  Receive Date: 20210701
  Receipt Date: 20210701
  Transmission Date: 20211014
  Serious: Yes (Disabling, Other)
  Sender: FDA-Public Use
  Company Number: US-PFIZER INC-2021733081

PATIENT
  Age: 34 Year
  Sex: Female

DRUGS (2)
  1. FILGRASTIM [Concomitant]
     Active Substance: FILGRASTIM
     Indication: CONGENITAL APLASTIC ANAEMIA
     Dosage: UNK
  2. PACLITAXEL. [Suspect]
     Active Substance: PACLITAXEL
     Indication: INVASIVE DUCTAL BREAST CARCINOMA
     Dosage: 12 WEEKS

REACTIONS (2)
  - Neuropathy peripheral [Recovering/Resolving]
  - Gait inability [Recovering/Resolving]
